FAERS Safety Report 10393445 (Version 1)
Quarter: 2014Q3

REPORT INFORMATION
  Report Type: Spontaneous
  Country: US (occurrence: US)
  Receive Date: 20140819
  Receipt Date: 20140819
  Transmission Date: 20150326
  Serious: Yes (Hospitalization)
  Sender: FDA-Public Use
  Company Number: US-GLAXOSMITHKLINE-A1084868A

PATIENT
  Age: 72 Year
  Sex: Female

DRUGS (26)
  1. ACETAMINOPHEN. [Suspect]
     Active Substance: ACETAMINOPHEN
     Indication: PAIN
     Route: 065
  2. AMITRIPTYLINE [Concomitant]
     Active Substance: AMITRIPTYLINE
  3. LAMICTAL [Concomitant]
     Active Substance: LAMOTRIGINE
  4. ASPIRIN + CAFFEINE + ACETAMINOPHEN [Concomitant]
  5. VENLAFAXINE [Concomitant]
     Active Substance: VENLAFAXINE HYDROCHLORIDE
  6. RIBOFLAVINE [Concomitant]
     Active Substance: RIBOFLAVIN
  7. VITAMIN D3 [Concomitant]
     Active Substance: CHOLECALCIFEROL
  8. FOLIC ACID. [Concomitant]
     Active Substance: FOLIC ACID
  9. OMEGA OIL [Concomitant]
  10. BOTOX [Concomitant]
     Active Substance: ONABOTULINUMTOXINA
  11. SIMVASTATIN. [Suspect]
     Active Substance: SIMVASTATIN
     Indication: BLOOD CHOLESTEROL INCREASED
     Route: 065
  12. COMPAZINE [Concomitant]
     Active Substance: PROCHLORPERAZINE MALEATE
  13. HERBAL MEDICATION [Concomitant]
     Active Substance: HERBALS
  14. TUMERIC [Concomitant]
  15. FLOVENT [Suspect]
     Active Substance: FLUTICASONE PROPIONATE
     Indication: ASTHMA
     Dosage: 2PUFF AS REQUIRED
     Route: 055
  16. AZITHROMYCIN [Suspect]
     Active Substance: AZITHROMYCIN ANHYDROUS
     Indication: CYSTITIS
     Route: 065
  17. VITAMIN A [Concomitant]
     Active Substance: VITAMIN A
  18. CINNAMON. [Concomitant]
     Active Substance: CINNAMON
  19. HEADACHE MEDICATION [Concomitant]
     Active Substance: UNSPECIFIED INGREDIENT
  20. ACIPHEX [Suspect]
     Active Substance: RABEPRAZOLE SODIUM
     Indication: GASTROOESOPHAGEAL REFLUX DISEASE
     Route: 065
  21. LISINOPRIL. [Concomitant]
     Active Substance: LISINOPRIL
  22. ADVAIR HFA [Suspect]
     Active Substance: FLUTICASONE PROPIONATE\SALMETEROL XINAFOATE
     Indication: ASTHMA
     Dosage: 1PUFF PER DAY
     Route: 055
  23. VITAMIN C [Concomitant]
     Active Substance: ASCORBIC ACID
  24. FLEXERIL [Concomitant]
     Active Substance: CYCLOBENZAPRINE HYDROCHLORIDE
  25. VENTOLIN [Suspect]
     Active Substance: ALBUTEROL SULFATE
     Indication: ASTHMA
     Dosage: 2PUFF AS REQUIRED
     Route: 055
  26. ASPIRIN. [Suspect]
     Active Substance: ASPIRIN
     Indication: PAIN
     Route: 065

REACTIONS (25)
  - Gastrointestinal disorder [Recovered/Resolved]
  - Drug dose omission [Unknown]
  - Cystitis [Recovering/Resolving]
  - Dyspnoea [Unknown]
  - Nausea [Unknown]
  - Blood pressure increased [Unknown]
  - Dermatitis contact [Unknown]
  - Chest pain [Unknown]
  - Dyspepsia [Unknown]
  - Bronchitis [Unknown]
  - Vomiting [Unknown]
  - Drug ineffective [Unknown]
  - Dizziness [Unknown]
  - Lung infection [Recovering/Resolving]
  - Kidney infection [Unknown]
  - Migraine [Unknown]
  - Blood pressure decreased [Unknown]
  - Heat exhaustion [Unknown]
  - Drug administration error [Unknown]
  - Adverse event [Unknown]
  - Pneumonia [Unknown]
  - Blood cholesterol increased [Unknown]
  - Pain [Unknown]
  - Weight decreased [Unknown]
  - Diarrhoea [Unknown]

NARRATIVE: CASE EVENT DATE: 201312
